FAERS Safety Report 8858916 (Version 2)
Quarter: 2012Q4

REPORT INFORMATION
  Report Type: 
  Country: US (occurrence: US)
  Receive Date: 20121024
  Receipt Date: 20121213
  Transmission Date: 20130627
  Serious: No
  Sender: FDA-Public Use
  Company Number: US-BAYER-2012-109884

PATIENT
  Sex: Female

DRUGS (2)
  1. CLIMARA [Suspect]
     Dosage: UNK
     Route: 062
     Dates: start: 1999
  2. CLIMARA [Suspect]
     Dosage: UNK
     Route: 062
     Dates: start: 1999

REACTIONS (2)
  - Hot flush [None]
  - Product adhesion issue [None]
